FAERS Safety Report 8217986 (Version 3)
Quarter: 2013Q4

REPORT INFORMATION
  Report Type: Report from Study
  Country: CA (occurrence: CA)
  Receive Date: 20111101
  Receipt Date: 20131203
  Transmission Date: 20140711
  Serious: Yes (Death)
  Sender: FDA-Public Use
  Company Number: CA-PFIZER INC-2011261247

PATIENT
  Age: 68 Year
  Sex: Male

DRUGS (9)
  1. REVATIO [Suspect]
     Indication: PULMONARY ARTERIAL HYPERTENSION
     Dosage: 20 MG, 3X/DAY
     Dates: start: 20070207
  2. THELIN [Concomitant]
     Indication: PULMONARY HYPERTENSION
     Dosage: 100 MG, 1X/DAY
  3. LASIX [Concomitant]
     Dosage: 80 MG IN THE MORNING AND 40 MG IN THE AFTERNOON
  4. SPIRONOLACTONE [Concomitant]
     Dosage: 25 MG, 1X/DAY
  5. NASONEX [Concomitant]
     Dosage: UNK
  6. METFORMIN [Concomitant]
     Dosage: UNK
  7. CODEINE [Concomitant]
     Dosage: 30 MG
  8. POTASSIUM [Concomitant]
     Dosage: 20 MEQ, 1X/DAY
  9. INSULIN [Concomitant]
     Dosage: UNK

REACTIONS (1)
  - Death [Fatal]
